FAERS Safety Report 9386113 (Version 1)
Quarter: 2013Q3

REPORT INFORMATION
  Report Type: Spontaneous
  Country: US (occurrence: US)
  Receive Date: 20130707
  Receipt Date: 20130707
  Transmission Date: 20140515
  Serious: No
  Sender: FDA-Public Use
  Company Number: US-ALLERGAN-1303895US

PATIENT
  Age: 80 Year
  Sex: Female

DRUGS (1)
  1. LUMIGAN? 0.01% [Suspect]
     Indication: GLAUCOMA
     Dosage: 2 GTT, QHS
     Route: 047
     Dates: start: 20130314

REACTIONS (5)
  - Scleral hyperaemia [Recovering/Resolving]
  - Nasopharyngitis [Recovered/Resolved]
  - Tension headache [Recovered/Resolved]
  - Rhinorrhoea [Recovered/Resolved]
  - Ocular hyperaemia [Recovering/Resolving]
